FAERS Safety Report 6576625-4 (Version None)
Quarter: 2010Q1

REPORT INFORMATION
  Report Type: 
  Country: None (occurrence: None)
  Receive Date: 20100210
  Receipt Date: 20100204
  Transmission Date: 20100710
  Serious: Yes (Hospitalization)
  Sender: FDA-Public Use
  Company Number: US-SANOFI-AVENTIS-2010SA007169

PATIENT
  Age: 75 Year
  Sex: Male

DRUGS (13)
  1. MULTAQ [Suspect]
     Route: 048
     Dates: start: 20090701
  2. MULTAQ [Suspect]
     Route: 048
     Dates: start: 20090701
  3. MULTAQ [Suspect]
     Indication: ATRIAL FIBRILLATION
     Route: 048
     Dates: start: 20090701
  4. SINEMET [Concomitant]
  5. ASPIRIN [Concomitant]
  6. BENICAR [Concomitant]
     Indication: HYPERTENSION
  7. NORVASC [Concomitant]
     Indication: HYPERTENSION
  8. NAMENDA [Concomitant]
  9. VITAMIN B-12 [Concomitant]
  10. FOLIC ACID [Concomitant]
  11. FLOMAX [Concomitant]
  12. LAMOTRIGINE [Concomitant]
  13. ALL OTHER THERAPEUTIC PRODUCTS [Concomitant]
     Indication: PARKINSON'S DISEASE

REACTIONS (10)
  - BLOOD PRESSURE DECREASED [None]
  - DEHYDRATION [None]
  - DIARRHOEA [None]
  - FALL [None]
  - HYPERHIDROSIS [None]
  - INCORRECT DOSE ADMINISTERED [None]
  - LOSS OF CONSCIOUSNESS [None]
  - OEDEMA PERIPHERAL [None]
  - VOMITING [None]
  - WRONG TECHNIQUE IN DRUG USAGE PROCESS [None]
